FAERS Safety Report 14488370 (Version 2)
Quarter: 2018Q4

REPORT INFORMATION
  Report Type: Spontaneous
  Country: CA (occurrence: CA)
  Receive Date: 20180205
  Receipt Date: 20181016
  Transmission Date: 20190204
  Serious: Yes (Other)
  Sender: FDA-Public Use
  Company Number: CA-ALLERGAN-1805665US

PATIENT
  Age: 77 Year
  Sex: Female

DRUGS (10)
  1. MAXALT [Concomitant]
     Active Substance: RIZATRIPTAN BENZOATE
  2. REMICADE [Concomitant]
     Active Substance: INFLIXIMAB
  3. BOTOX [Suspect]
     Active Substance: ONABOTULINUMTOXINA
     Dosage: UNK UNK, SINGLE
     Route: 030
     Dates: start: 20141006, end: 20141006
  4. CORTIMENT [Concomitant]
  5. METOCLOPRAMIDE HYDROCHLORIDE. [Concomitant]
     Active Substance: METOCLOPRAMIDE HYDROCHLORIDE
  6. IRON [Concomitant]
     Active Substance: IRON
  7. PULMOCARE [Concomitant]
  8. BOTOX [Suspect]
     Active Substance: ONABOTULINUMTOXINA
     Indication: MIGRAINE
     Dosage: UNK UNK, SINGLE
     Route: 030
     Dates: start: 201807, end: 201807
  9. TYLENOL [Concomitant]
     Active Substance: ACETAMINOPHEN
  10. ESTRING [Concomitant]
     Active Substance: ESTRADIOL

REACTIONS (2)
  - Lung adenocarcinoma [Unknown]
  - Eyelid ptosis [Unknown]

NARRATIVE: CASE EVENT DATE: 201610
